FAERS Safety Report 20832255 (Version 1)
Quarter: 2022Q2

REPORT INFORMATION
  Report Type: Spontaneous
  Country: FR (occurrence: FR)
  Receive Date: 20220516
  Receipt Date: 20220516
  Transmission Date: 20220720
  Serious: Yes (Other)
  Sender: FDA-Public Use
  Company Number: FR-DENTSPLY-2020SCDP000116

PATIENT
  Age: 43 Year
  Sex: Female

DRUGS (1)
  1. MEPIVACAINE HYDROCHLORIDE [Suspect]
     Active Substance: MEPIVACAINE HYDROCHLORIDE
     Indication: Dental local anaesthesia
     Dosage: 2 DOSAGE FORM, TOTAL, DENTAL INTRALIGAMENTARY INJECTION, SOLUTION FOR INJECTION
     Route: 004
     Dates: start: 20200109, end: 20200109

REACTIONS (4)
  - Osteonecrosis [Unknown]
  - Pain in jaw [Recovered/Resolved]
  - Alveolitis [Unknown]
  - Aphthous ulcer [None]

NARRATIVE: CASE EVENT DATE: 20200109
